FAERS Safety Report 8879738 (Version 1)
Quarter: 2012Q4

REPORT INFORMATION
  Report Type: 
  Country: KP (occurrence: KP)
  Receive Date: 20121031
  Receipt Date: 20121031
  Transmission Date: 20130627
  Serious: Yes (Other)
  Sender: FDA-Public Use
  Company Number: KP-SPECTRUM PHARMACEUTICALS, INC.-12-F-KP-00166

PATIENT
  Age: 83 Year
  Sex: Male

DRUGS (4)
  1. FLUOROURACIL [Suspect]
     Indication: COLON CANCER STAGE III
     Dosage: 600 mg/m2, for 22 hours on days one and two
     Route: 042
  2. FLUOROURACIL [Suspect]
     Dosage: 400 mg/m2, UNK
     Route: 040
  3. LEUCOVORIN [Suspect]
     Indication: COLON CANCER STAGE III
     Dosage: 200 mg/m2, for two hours on days one and two before fluorouracil infusion
     Route: 042
  4. OXALIPLATIN [Suspect]
     Indication: COLON CANCER STAGE III
     Dosage: 85 mg/m2, on day one
     Route: 042

REACTIONS (9)
  - Arteriospasm coronary [Recovered/Resolved]
  - Coronary artery stenosis [Recovered/Resolved]
  - Arteriosclerosis [Recovered/Resolved]
  - Prinzmetal angina [Recovered/Resolved]
  - Chest pain [Recovered/Resolved]
  - Electrocardiogram ST segment elevation [Recovered/Resolved]
  - Electrocardiogram T wave abnormal [Recovered/Resolved]
  - Electrocardiogram ST segment depression [Recovered/Resolved]
  - Ventricular hypokinesia [Recovered/Resolved]
